FAERS Safety Report 7280223-7 (Version None)
Quarter: 2011Q1

REPORT INFORMATION
  Report Type: 
  Country: None (occurrence: None)
  Receive Date: 20110208
  Receipt Date: 20110201
  Transmission Date: 20110831
  Serious: Yes (Hospitalization)
  Sender: FDA-Public Use
  Company Number: US-AMGEN-USASP2011006196

PATIENT
  Age: 72 Year
  Sex: Female

DRUGS (2)
  1. ENBREL [Suspect]
     Indication: RHEUMATOID ARTHRITIS
     Dosage: 50 MG, QWK
     Dates: start: 20041103, end: 20101001
  2. TREXALL [Concomitant]
     Dosage: UNK
     Dates: start: 20010101

REACTIONS (2)
  - RHEUMATOID ARTHRITIS [None]
  - BREAST CANCER [None]
